FAERS Safety Report 9451685 (Version 1)
Quarter: 2013Q3

REPORT INFORMATION
  Report Type: Spontaneous
  Country: PT (occurrence: PT)
  Receive Date: 20130812
  Receipt Date: 20130812
  Transmission Date: 20140515
  Serious: Yes (Death, Hospitalization, Other)
  Sender: FDA-Public Use
  Company Number: PT-009507513-1308PRT003350

PATIENT
  Age: 73 Year
  Sex: Male
  Weight: 65 kg

DRUGS (13)
  1. TEMODAL [Suspect]
     Indication: GLIOBLASTOMA MULTIFORME
     Dosage: 20 MG, QD
     Route: 048
     Dates: start: 20130405, end: 20130409
  2. TEMODAL [Suspect]
     Dosage: 15 MG, QD
     Route: 048
     Dates: start: 20130405, end: 20130409
  3. TEMOZOLOMIDE [Suspect]
     Indication: GLIOBLASTOMA MULTIFORME
     Route: 048
     Dates: start: 20130405, end: 20130409
  4. COAPROVEL [Concomitant]
     Indication: HYPERTENSION
     Dosage: 1 DF (300+ 12.5 MG), QD
     Route: 048
  5. EUCREAS [Concomitant]
     Indication: DIABETES MELLITUS
     Dosage: 1 DF (800 + 50 MG), BID
     Route: 048
  6. GINCOBEN [Concomitant]
     Indication: DEMENTIA
     Dosage: 40 MG, QD
     Route: 048
  7. ATORVASTATIN CALCIUM [Concomitant]
     Indication: DYSLIPIDAEMIA
     Dosage: 10 MG, QD
     Route: 048
     Dates: end: 20130220
  8. OMEPRAZOLE [Concomitant]
     Indication: PROPHYLAXIS AGAINST GASTROINTESTINAL ULCER
     Dosage: 20 MG, QD
     Route: 048
  9. KEPPRA [Concomitant]
     Indication: CONVULSION
     Dosage: 500 MG, BID
     Route: 048
  10. DEXAMETHASONE [Concomitant]
     Indication: OEDEMA
     Dosage: 12 MG, QD
     Route: 048
  11. SERENAL (OXAZEPAM) [Concomitant]
     Indication: ANXIETY
     Dosage: 15 MG, QD
     Route: 048
  12. DONEPEZIL HYDROCHLORIDE [Concomitant]
     Indication: DEMENTIA ALZHEIMER^S TYPE
     Dosage: 10 MG, QD
     Route: 048
  13. GRANISETRON [Concomitant]
     Indication: ANTIEMETIC SUPPORTIVE CARE
     Dosage: 1 MG, QD
     Route: 048
     Dates: start: 20130405, end: 20130409

REACTIONS (1)
  - Pancytopenia [Fatal]
